FAERS Safety Report 5386322-9 (Version None)
Quarter: 2007Q3

REPORT INFORMATION
  Report Type: 
  Country: None (occurrence: None)
  Receive Date: 20070713
  Receipt Date: 20070704
  Transmission Date: 20080115
  Serious: Yes (Death, Hospitalization, Other)
  Sender: FDA-Public Use
  Company Number: SE-NOVOPROD-254110

PATIENT
  Age: 8 Year
  Sex: Female
  Weight: 37 kg

DRUGS (23)
  1. NOVOSEVEN [Suspect]
     Indication: HAEMORRHAGE
     Dosage: 102 UG/KG
     Route: 042
     Dates: start: 20010123, end: 20070123
  2. NOVOSEVEN [Suspect]
     Dosage: 34 UG/KG
     Route: 042
     Dates: start: 20010123, end: 20070123
  3. NOVOSEVEN [Suspect]
     Dosage: 64 UG/KG,
     Route: 042
     Dates: start: 20010130, end: 20070130
  4. NOVOSEVEN [Suspect]
     Dosage: 64 UNK, UNK
     Route: 042
     Dates: start: 20010201, end: 20010201
  5. OCTREOTIDE ACETATE [Concomitant]
     Dosage: 25 UG/H,
     Route: 042
     Dates: start: 20010129, end: 20010201
  6. URSO FALK [Concomitant]
     Dosage: 250 MG, BID
     Route: 048
     Dates: start: 20010120, end: 20010129
  7. LOSEC                              /00661201/ [Concomitant]
     Dosage: 20 MG, QD
     Route: 048
     Dates: start: 20010119, end: 20010129
  8. LOSEC                              /00661201/ [Concomitant]
     Dosage: 40 MG, QD
     Route: 042
     Dates: start: 20010130, end: 20010201
  9. SPIRONOLAKTON [Concomitant]
     Dosage: 25 MG, QD
     Route: 048
     Dates: start: 20010121, end: 20010125
  10. FUROSEMID                          /00032601/ [Concomitant]
     Dosage: 20 MG, BID
     Route: 048
     Dates: start: 20010121, end: 20010129
  11. FUROSEMID                          /00032601/ [Concomitant]
     Dosage: 20 MG, BID
     Route: 042
     Dates: start: 20010130, end: 20010201
  12. PREDNISOLON                        /00016201/ [Concomitant]
     Dosage: 20 MG, TID
     Route: 048
     Dates: start: 20010125, end: 20010129
  13. AZATHIOPRINE [Concomitant]
     Dosage: 12.5 MG, QD
     Route: 048
     Dates: start: 20010126, end: 20010129
  14. NATRIUMPHOSPHAT [Concomitant]
     Dosage: 1200 MG, BID
     Route: 048
     Dates: start: 20010126, end: 20010129
  15. KAJOS [Concomitant]
     Dosage: 10 ML, QD
     Route: 048
     Dates: start: 20010124, end: 20010124
  16. KAJOS [Concomitant]
     Dosage: 10 ML, BID
     Route: 048
     Dates: start: 20010128, end: 20010128
  17. KAJOS [Concomitant]
     Dosage: 12.5 ML, BID
     Route: 048
     Dates: start: 20010129, end: 20010129
  18. MORPHIN                            /00036302/ [Concomitant]
     Dosage: 2 MG, BID
     Route: 042
     Dates: start: 20010126, end: 20010201
  19. CLAFORAN [Concomitant]
     Dosage: 1250 MG, TID
     Route: 042
     Dates: start: 20010129, end: 20010201
  20. DOKTACILLIN                        /00000501/ [Concomitant]
     Dosage: 1250 MG, TID
     Route: 048
     Dates: start: 20010129, end: 20010201
  21. FLAGYL                             /00012501/ [Concomitant]
     Dosage: 250 MG, TID
     Dates: start: 20010129, end: 20010201
  22. SOLDACTONE [Concomitant]
     Dosage: 25 MG, QD
     Route: 048
     Dates: start: 20010130, end: 20010201
  23. IMPORTAL [Concomitant]
     Dosage: 20 G, QD
     Dates: start: 20010121, end: 20010129

REACTIONS (3)
  - FUNGAL SEPSIS [None]
  - MULTI-ORGAN FAILURE [None]
  - PORTAL VEIN THROMBOSIS [None]
